FAERS Safety Report 7786428-0 (Version None)
Quarter: 2011Q3

REPORT INFORMATION
  Report Type: 
  Country: None (occurrence: None)
  Receive Date: 20110929
  Receipt Date: 20110920
  Transmission Date: 20111222
  Serious: Yes (Other)
  Sender: FDA-Public Use
  Company Number: US-SANOFI-AVENTIS-2011SA033868

PATIENT
  Age: 71 Year
  Sex: Female

DRUGS (3)
  1. INSULIN [Concomitant]
  2. LANTUS [Suspect]
     Indication: DIABETES MELLITUS
     Dosage: DOSE:19 UNIT(S)
     Route: 058
  3. SOLOSTAR [Suspect]
     Indication: DIABETES MELLITUS

REACTIONS (3)
  - MACULOPATHY [None]
  - VISUAL IMPAIRMENT [None]
  - VISION BLURRED [None]
